FAERS Safety Report 4488825-8 (Version None)
Quarter: 2004Q4

REPORT INFORMATION
  Report Type: 
  Country: None (occurrence: None)
  Receive Date: 20041029
  Receipt Date: 20041026
  Transmission Date: 20050328
  Serious: Yes (Hospitalization)
  Sender: FDA-Public Use
  Company Number: CA-MERCK-0410CAN00382

PATIENT
  Sex: Female

DRUGS (2)
  1. VIOXX [Suspect]
     Indication: SCIATICA
     Route: 048
  2. VIOXX [Suspect]
     Indication: ARTHRITIS
     Route: 048

REACTIONS (5)
  - BLADDER DISORDER [None]
  - DIZZINESS [None]
  - MUSCULOSKELETAL STIFFNESS [None]
  - PRURITUS [None]
  - SYNCOPE [None]
